FAERS Safety Report 20809328 (Version 2)
Quarter: 2022Q2

REPORT INFORMATION
  Report Type: Report from Study
  Country: US (occurrence: US)
  Receive Date: 20220510
  Receipt Date: 20220513
  Transmission Date: 20220721
  Serious: Yes (Life-Threatening, Hospitalization, Other)
  Sender: FDA-Public Use
  Company Number: US-GLAXOSMITHKLINE-US2022GSK074498

PATIENT

DRUGS (2)
  1. BELIMUMAB [Suspect]
     Active Substance: BELIMUMAB
     Indication: Systemic lupus erythematosus
     Dosage: UNK, CYC
     Route: 042
  2. BELIMUMAB [Suspect]
     Active Substance: BELIMUMAB
     Dosage: UNK, CYC
     Route: 042
     Dates: start: 20200409

REACTIONS (1)
  - Herpes simplex meningitis [Recovered/Resolved]

NARRATIVE: CASE EVENT DATE: 20200304
